FAERS Safety Report 6577059-9 (Version None)
Quarter: 2010Q1

REPORT INFORMATION
  Report Type: 
  Country: None (occurrence: None)
  Receive Date: 20100210
  Receipt Date: 20100205
  Transmission Date: 20100710
  Serious: Yes (Hospitalization)
  Sender: FDA-Public Use
  Company Number: US-BRISTOL-MYERS SQUIBB COMPANY-14966519

PATIENT
  Age: 5 Decade
  Sex: Female

DRUGS (2)
  1. ABILIFY [Suspect]
     Route: 048
  2. SNRI [Suspect]

REACTIONS (1)
  - SEROTONIN SYNDROME [None]
